FAERS Safety Report 13854291 (Version 2)
Quarter: 2017Q4

REPORT INFORMATION
  Report Type: Spontaneous
  Country: US (occurrence: US)
  Receive Date: 20170809
  Receipt Date: 20171110
  Transmission Date: 20180320
  Serious: No
  Sender: FDA-Public Use
  Company Number: US-BAUSCH-BL-2017-021662

PATIENT
  Age: 92 Year
  Sex: Male

DRUGS (2)
  1. PROVENGE [Suspect]
     Active Substance: SIPULEUCEL-T
     Indication: PROSTATE CANCER
     Dosage: SINGLE
     Route: 042
     Dates: start: 20170615, end: 20170615
  2. PROVENGE [Suspect]
     Active Substance: SIPULEUCEL-T
     Dosage: SINGLE
     Route: 042
     Dates: start: 20170629, end: 20170629

REACTIONS (1)
  - Culture positive [Unknown]

NARRATIVE: CASE EVENT DATE: 20170713
